FAERS Safety Report 22262643 (Version 4)
Quarter: 2023Q2

REPORT INFORMATION
  Report Type: Report from Study
  Country: US (occurrence: US)
  Receive Date: 20230428
  Receipt Date: 20230516
  Transmission Date: 20230722
  Serious: No
  Sender: FDA-Public Use
  Company Number: US-002147023-NVSC2023US094762

PATIENT
  Sex: Male

DRUGS (4)
  1. TRIAMCINOLONE [Suspect]
     Active Substance: TRIAMCINOLONE
     Indication: Psoriasis
     Dosage: UNK
     Route: 065
  2. FLUOCINONIDE [Suspect]
     Active Substance: FLUOCINONIDE
     Indication: Psoriasis
     Dosage: UNK
     Route: 065
  3. COSENTYX [Suspect]
     Active Substance: SECUKINUMAB
     Indication: Psoriasis
     Dosage: UNK
     Route: 065
  4. ERGOCALCIFEROL [Suspect]
     Active Substance: ERGOCALCIFEROL
     Indication: Psoriasis
     Dosage: UNK
     Route: 065

REACTIONS (6)
  - Condition aggravated [Unknown]
  - Arthralgia [Unknown]
  - Psoriasis [Unknown]
  - Drug ineffective [Unknown]
  - Androgenetic alopecia [Unknown]
  - Photodermatosis [Unknown]
